FAERS Safety Report 6554146-2 (Version None)
Quarter: 2010Q1

REPORT INFORMATION
  Report Type: 
  Country: None (occurrence: None)
  Receive Date: 20100125
  Receipt Date: 20100125
  Transmission Date: 20100710
  Serious: Yes (Death, Hospitalization)
  Sender: FDA-Public Use
  Company Number: None

PATIENT
  Age: 6 Year
  Sex: Male

DRUGS (1)
  1. TYLENOL-500 [Suspect]

REACTIONS (8)
  - BLOOD CULTURE POSITIVE [None]
  - BURKHOLDERIA CEPACIA COMPLEX INFECTION [None]
  - CULTURE URINE POSITIVE [None]
  - DIARRHOEA [None]
  - PNEUMONIA [None]
  - PRODUCT QUALITY ISSUE [None]
  - SPUTUM CULTURE POSITIVE [None]
  - VOMITING [None]
